FAERS Safety Report 17062902 (Version 1)
Quarter: 2019Q4

REPORT INFORMATION
  Report Type: Spontaneous
  Country: DE (occurrence: DE)
  Receive Date: 20191122
  Receipt Date: 20191122
  Transmission Date: 20200122
  Serious: Yes (Other)
  Sender: FDA-Public Use
  Company Number: DE-ROCHE-2478532

PATIENT
  Age: 42 Year
  Sex: Male
  Weight: 89.5 kg

DRUGS (5)
  1. HEMLIBRA [Suspect]
     Active Substance: EMICIZUMAB-KXWH
     Indication: FACTOR VIII DEFICIENCY
     Route: 065
     Dates: start: 20190405
  2. FACTOR VIII [Concomitant]
     Active Substance: ANTIHEMOPHILIC FACTOR HUMAN
     Dosage: DURING SERTRALIN THERAPY
     Route: 065
  3. SERTRALIN [SERTRALINE] [Suspect]
     Active Substance: SERTRALINE HYDROCHLORIDE
     Indication: DEPRESSION
     Route: 065
  4. HEMLIBRA [Suspect]
     Active Substance: EMICIZUMAB-KXWH
     Dosage: MAINTENANCE THERAPY
     Route: 065
     Dates: start: 20190503
  5. FACTOR VIII [Concomitant]
     Active Substance: ANTIHEMOPHILIC FACTOR HUMAN
     Indication: PROPHYLAXIS
     Dosage: BEFORE SERTRALIN THERAPY
     Route: 065

REACTIONS (5)
  - Arthralgia [Unknown]
  - Synovitis [Recovering/Resolving]
  - Joint swelling [Recovering/Resolving]
  - Joint effusion [Unknown]
  - Haemarthrosis [Unknown]

NARRATIVE: CASE EVENT DATE: 20190731
